FAERS Safety Report 5362983-5 (Version None)
Quarter: 2007Q2

REPORT INFORMATION
  Report Type: 
  Country: None (occurrence: None)
  Receive Date: 20070615
  Receipt Date: 20070605
  Transmission Date: 20071010
  Serious: Yes (Death)
  Sender: FDA-Public Use
  Company Number: 2007S1000202

PATIENT
  Sex: Female

DRUGS (3)
  1. CUBICIN [Suspect]
     Indication: ENTEROCOCCAL BACTERAEMIA
  2. LINEZOLID [Concomitant]
  3. ANTITHYMOCYTE GLOBULIN [Concomitant]

REACTIONS (4)
  - HYPOTENSION [None]
  - HYPOXIA [None]
  - PANCYTOPENIA [None]
  - PYREXIA [None]
